FAERS Safety Report 5830249-2 (Version None)
Quarter: 2008Q3

REPORT INFORMATION
  Report Type: 
  Country: None (occurrence: None)
  Receive Date: 20080801
  Receipt Date: 20080723
  Transmission Date: 20090109
  Serious: Yes (Other)
  Sender: FDA-Public Use
  Company Number: B0531264A

PATIENT
  Age: 87 Year
  Sex: Female
  Weight: 62 kg

DRUGS (6)
  1. REQUIP [Suspect]
     Indication: RESTLESS LEGS SYNDROME
     Route: 065
     Dates: start: 20070501
  2. NEORAL [Concomitant]
     Indication: PSORIASIS
  3. CALCIUM CARBONATE [Concomitant]
     Indication: OSTEOPOROSIS
  4. CHOLECALCIFEROL [Concomitant]
     Indication: OSTEOPOROSIS
  5. BONIVA [Concomitant]
     Indication: OSTEOPOROSIS
  6. LASIX [Concomitant]

REACTIONS (4)
  - OEDEMA PERIPHERAL [None]
  - PERFORMANCE STATUS DECREASED [None]
  - SKIN ULCER [None]
  - WEIGHT INCREASED [None]
